FAERS Safety Report 5359358-1 (Version None)
Quarter: 2007Q2

REPORT INFORMATION
  Report Type: 
  Country: None (occurrence: None)
  Receive Date: 20070615
  Receipt Date: 20070606
  Transmission Date: 20071010
  Serious: Yes (Hospitalization)
  Sender: FDA-Public Use
  Company Number: CA-PFIZER INC-2006101778

PATIENT
  Sex: Male
  Weight: 64.2 kg

DRUGS (5)
  1. SU-011,248 [Suspect]
     Indication: METASTATIC RENAL CELL CARCINOMA
     Route: 048
  2. ELTROXIN [Concomitant]
     Route: 048
  3. MEGACE [Concomitant]
     Route: 048
     Dates: start: 20060101
  4. OXAZEPAM [Concomitant]
     Route: 048
     Dates: start: 20020110
  5. NOVOHYDRAZIDE [Concomitant]
     Route: 048
     Dates: start: 20051201

REACTIONS (3)
  - DEHYDRATION [None]
  - DYSPHAGIA [None]
  - LOWER RESPIRATORY TRACT INFECTION [None]
